FAERS Safety Report 6545368-5 (Version None)
Quarter: 2010Q1

REPORT INFORMATION
  Report Type: 
  Country: None (occurrence: None)
  Receive Date: 20100121
  Receipt Date: 20100118
  Transmission Date: 20100710
  Serious: Yes (Hospitalization)
  Sender: FDA-Public Use
  Company Number: ES-MERCK-0909ESP00020

PATIENT
  Age: 16 Year
  Sex: Female

DRUGS (3)
  1. SINGULAIR [Suspect]
     Indication: ASTHMA
     Route: 048
     Dates: start: 20090525, end: 20090525
  2. BUDESONIDE AND FORMOTEROL FUMARATE [Concomitant]
     Indication: ASTHMA
     Route: 065
  3. IRON (UNSPECIFIED) [Concomitant]
     Indication: ANAEMIA
     Route: 065

REACTIONS (2)
  - PARTIAL SEIZURES [None]
  - TEMPORAL LOBE EPILEPSY [None]
